FAERS Safety Report 4982220-0 (Version None)
Quarter: 2006Q2

REPORT INFORMATION
  Report Type: 
  Country: None (occurrence: None)
  Receive Date: 20060419
  Receipt Date: 20060403
  Transmission Date: 20061013
  Serious: Yes (Other)
  Sender: FDA-Public Use
  Company Number: 8012835

PATIENT
  Age: 10 Year
  Sex: Male
  Weight: 28 kg

DRUGS (2)
  1. METADATE CD [Suspect]
     Indication: ATTENTION DEFICIT/HYPERACTIVITY DISORDER
     Dosage: 20 MG/D PO
     Route: 048
     Dates: start: 20050222, end: 20050919
  2. CLOIDINE [Concomitant]

REACTIONS (3)
  - DYSTONIA [None]
  - MUSCULOSKELETAL STIFFNESS [None]
  - STARING [None]
